FAERS Safety Report 7251349-9 (Version None)
Quarter: 2011Q1

REPORT INFORMATION
  Report Type: 
  Country: None (occurrence: None)
  Receive Date: 20110128
  Receipt Date: 20110124
  Transmission Date: 20110831
  Serious: Yes (Other)
  Sender: FDA-Public Use
  Company Number: GB-GILEAD-GB-CVT-100289

PATIENT
  Sex: Male

DRUGS (7)
  1. ASA [Concomitant]
  2. ROSIGLITAZONE [Concomitant]
  3. NICORANDIL [Concomitant]
  4. RANEXA [Suspect]
     Indication: PRODUCT USED FOR UNKNOWN INDICATION
     Route: 048
  5. RAMIPRIL [Concomitant]
  6. PLAVIX [Concomitant]
     Indication: MYOCARDIAL ISCHAEMIA
  7. ISOSORBIDE MONONITRATE [Concomitant]

REACTIONS (5)
  - BLISTER [None]
  - MALAISE [None]
  - RASH [None]
  - OEDEMA PERIPHERAL [None]
  - SKIN ULCER [None]
